FAERS Safety Report 10765119 (Version 2)
Quarter: 2015Q1

REPORT INFORMATION
  Report Type: Spontaneous
  Country: IT (occurrence: None)
  Receive Date: 20150203
  Receipt Date: 20150203
  Transmission Date: 20150721
  Serious: Yes (Other)
  Sender: FDA-Public Use
  Company Number: 2677535

PATIENT
  Age: 58 Year
  Sex: Female

DRUGS (5)
  1. TRIATEC [Concomitant]
     Active Substance: RAMIPRIL
  2. LEGALON [Concomitant]
     Active Substance: MILK THISTLE
  3. FLUOROURACIL TEVA [Suspect]
     Active Substance: FLUOROURACIL
     Indication: COLON CANCER
     Dosage: 4116 MG MILLIGRAM(S), CYCLICAL, INTRAVENOUS (NOT OTHERWISE SPECIFIED)
     Route: 042
     Dates: start: 20140422, end: 20140908
  4. OXALIPLATIN. [Suspect]
     Active Substance: OXALIPLATIN
     Indication: COLON CANCER
     Dosage: 125 MG MILLIGRAM(S), CYCLICAL, INTRAVENOUS (NOT OTHERWISE SPECIFIED)
     Route: 042
     Dates: start: 20140422, end: 20140908
  5. TILDIEM [Concomitant]
     Active Substance: DILTIAZEM HYDROCHLORIDE

REACTIONS (4)
  - Pruritus [None]
  - Feeling hot [None]
  - Rash generalised [None]
  - Infusion related reaction [None]

NARRATIVE: CASE EVENT DATE: 20140908
